FAERS Safety Report 10914005 (Version 1)
Quarter: 2015Q1

REPORT INFORMATION
  Report Type: Spontaneous
  Country: US (occurrence: None)
  Receive Date: 20150310
  Receipt Date: 20150310
  Transmission Date: 20150721
  Serious: Yes (Other)
  Sender: FDA-Public Use
  Company Number: US-2011VAL000195

PATIENT
  Age: 35 Year
  Sex: Female

DRUGS (5)
  1. DEXAMETHASONE (DEXAMETHASONE) [Suspect]
     Active Substance: DEXAMETHASONE
     Indication: PRODUCT USED FOR UNKNOWN INDICATION
     Route: 048
  2. LEVOTHYROXINE (LEVOTHYROXINE) [Suspect]
     Active Substance: LEVOTHYROXINE
     Indication: PRODUCT USED FOR UNKNOWN INDICATION
  3. BROMOCRIPTINE MESYLATE (BROMOCRIPTINE MESYLATE) UNKNOWN [Suspect]
     Active Substance: BROMOCRIPTINE MESYLATE
     Indication: PRODUCT USED FOR UNKNOWN INDICATION
     Route: 048
  4. HYDROCORTISONE (HYDROCORTISONE) [Suspect]
     Active Substance: HYDROCORTISONE
     Indication: PRODUCT USED FOR UNKNOWN INDICATION
     Dosage: 2 DF (20MG IN THE MORNING AND 10MG IN THE EVENING)
     Route: 048
  5. STEROIDS [Concomitant]
     Active Substance: UNSPECIFIED INGREDIENT

REACTIONS (7)
  - Nausea [None]
  - Headache [None]
  - Thyroxine free decreased [None]
  - Vomiting [None]
  - Pituitary haemorrhage [None]
  - Diplopia [None]
  - Maternal exposure during pregnancy [None]
